FAERS Safety Report 21652358 (Version 4)
Quarter: 2023Q1

REPORT INFORMATION
  Report Type: Spontaneous
  Country: CA (occurrence: CA)
  Receive Date: 20221128
  Receipt Date: 20230213
  Transmission Date: 20230417
  Serious: Yes (Other)
  Sender: FDA-Public Use
  Company Number: CA-PFIZER INC-202201041568

PATIENT
  Age: 13 Year
  Sex: Female
  Weight: 70.2 kg

DRUGS (6)
  1. RUXIENCE [Suspect]
     Active Substance: RITUXIMAB-PVVR
     Indication: Pulmonary vasculitis
     Dosage: 600 MG, 4 DOSES EVERY (Q) 6 MONTHS
     Route: 042
     Dates: start: 202202, end: 2022
  2. RUXIENCE [Suspect]
     Active Substance: RITUXIMAB-PVVR
     Dosage: 600 MG, WEEKLY 4 DOSES
     Route: 042
     Dates: start: 20220907
  3. RUXIENCE [Suspect]
     Active Substance: RITUXIMAB-PVVR
     Dosage: 375 MG 2 DOSES 2 WEEK APART 0,6 MONTHS
     Route: 042
     Dates: start: 20220907
  4. ACETAMINOPHEN [Concomitant]
     Active Substance: ACETAMINOPHEN
     Indication: Premedication
     Dosage: 650 MG, 15-30 MIN PRE INFUSION
     Route: 048
  5. CETIRIZINE [Concomitant]
     Active Substance: CETIRIZINE HYDROCHLORIDE
     Indication: Premedication
     Dosage: 10 MG, 30 MIN PRE INFUSION
     Route: 048
  6. METHYLPREDNISOLONE [Concomitant]
     Active Substance: METHYLPREDNISOLONE
     Indication: Premedication
     Dosage: 100 MG, 30 MIN PRE INFUSION
     Route: 042

REACTIONS (34)
  - Oxygen saturation decreased [Recovered/Resolved]
  - Tachycardia [Unknown]
  - Respiratory rate increased [Unknown]
  - Off label use [Unknown]
  - Haemoglobin increased [Unknown]
  - Red blood cell sedimentation rate increased [Unknown]
  - C-reactive protein increased [Unknown]
  - Alanine aminotransferase increased [Unknown]
  - Aspartate aminotransferase increased [Unknown]
  - COVID-19 [Unknown]
  - Ingrowing nail [Unknown]
  - Nasal discomfort [Unknown]
  - Inflammatory marker increased [Unknown]
  - Haemoptysis [Unknown]
  - Blood immunoglobulin G decreased [Unknown]
  - Epistaxis [Recovered/Resolved]
  - Throat irritation [Recovered/Resolved]
  - Throat irritation [Recovered/Resolved]
  - Nausea [Recovered/Resolved]
  - Inflammation [Recovered/Resolved]
  - Lethargy [Recovered/Resolved]
  - Oxygen consumption increased [Unknown]
  - Back pain [Unknown]
  - Alopecia [Unknown]
  - Joint swelling [Unknown]
  - Arthralgia [Unknown]
  - Chest pain [Recovered/Resolved]
  - Fatigue [Unknown]
  - Swollen tongue [Recovered/Resolved]
  - Throat irritation [Recovered/Resolved]
  - Bladder discomfort [Not Recovered/Not Resolved]
  - Oxygen saturation decreased [Recovering/Resolving]
  - Lung disorder [Unknown]
  - Cytogenetic abnormality [Unknown]

NARRATIVE: CASE EVENT DATE: 20220101
